FAERS Safety Report 9412604 (Version 1)
Quarter: 2013Q3

REPORT INFORMATION
  Report Type: Spontaneous
  Country: US (occurrence: US)
  Receive Date: 20130722
  Receipt Date: 20130722
  Transmission Date: 20140515
  Serious: Yes (Other)
  Sender: FDA-Public Use
  Company Number: US-BAYER-2013-085915

PATIENT
  Age: 25 Year
  Sex: Female

DRUGS (1)
  1. BEYAZ [Suspect]
     Dosage: UNK

REACTIONS (6)
  - Vaginal haemorrhage [Not Recovered/Not Resolved]
  - Genital haemorrhage [Not Recovered/Not Resolved]
  - Breast tenderness [Not Recovered/Not Resolved]
  - Abdominal pain upper [Not Recovered/Not Resolved]
  - Drug dose omission [None]
  - Inappropriate schedule of drug administration [None]
